FAERS Safety Report 4337090-0 (Version None)
Quarter: 2004Q1

REPORT INFORMATION
  Report Type: 
  Country: None (occurrence: None)
  Receive Date: 20040329
  Receipt Date: 20031126
  Transmission Date: 20041129
  Serious: No
  Sender: FDA-Public Use
  Company Number: USA031153490

PATIENT
  Sex: Female
  Weight: 23 kg

DRUGS (1)
  1. STRATTERA [Suspect]
     Dosage: 18 MG/DAY
     Dates: start: 20031121

REACTIONS (2)
  - GASTRITIS [None]
  - WEIGHT DECREASED [None]
